FAERS Safety Report 6162836-9 (Version None)
Quarter: 2009Q2

REPORT INFORMATION
  Report Type: 
  Country: None (occurrence: None)
  Receive Date: 20090421
  Receipt Date: 20080930
  Transmission Date: 20091009
  Serious: No
  Sender: FDA-Public Use
  Company Number: US-ASTRAZENECA-2008UW21041

PATIENT
  Age: 80 Year
  Sex: Female
  Weight: 65.8 kg

DRUGS (6)
  1. TOPROL-XL [Suspect]
     Indication: ATRIAL FIBRILLATION
     Route: 048
  2. DIGITALIS TAB [Concomitant]
  3. VITAMINS [Concomitant]
  4. FISH OIL [Concomitant]
  5. LIQUID CALCIUM [Concomitant]
  6. COUMADIN [Concomitant]

REACTIONS (4)
  - ALOPECIA [None]
  - DRY EYE [None]
  - DRY MOUTH [None]
  - DRY SKIN [None]
